FAERS Safety Report 5011649-X (Version None)
Quarter: 2006Q2

REPORT INFORMATION
  Report Type: 
  Country: None (occurrence: None)
  Receive Date: 20060526
  Receipt Date: 20051031
  Transmission Date: 20061013
  Serious: Yes (Disabling, Other)
  Sender: FDA-Public Use
  Company Number: 2005UW16466

PATIENT
  Age: 21666 Day
  Sex: Female
  Weight: 79.5 kg

DRUGS (2)
  1. ARIMIDEX [Suspect]
     Indication: BREAST CANCER
     Route: 048
     Dates: start: 20040718
  2. PRAVACHOL [Concomitant]

REACTIONS (1)
  - DEAFNESS UNILATERAL [None]
